FAERS Safety Report 6814249-1 (Version None)
Quarter: 2010Q3

REPORT INFORMATION
  Report Type: 
  Country: None (occurrence: None)
  Receive Date: 20100702
  Receipt Date: 20100624
  Transmission Date: 20110219
  Serious: Yes (Other)
  Sender: FDA-Public Use
  Company Number: JP-JNJFOC-20100608315

PATIENT
  Age: 6 Decade
  Sex: Female

DRUGS (7)
  1. DUROTEP MT [Suspect]
     Indication: PAIN MANAGEMENT
     Route: 062
  2. RISPERDAL [Suspect]
     Indication: PRODUCT USED FOR UNKNOWN INDICATION
     Route: 048
  3. CLONAZEPAM [Suspect]
     Indication: PRODUCT USED FOR UNKNOWN INDICATION
     Route: 048
  4. NICERGOLINE [Suspect]
     Indication: PRODUCT USED FOR UNKNOWN INDICATION
     Route: 048
  5. GABAPENTIN [Suspect]
     Indication: NEURALGIA
     Route: 065
  6. MORPHINE [Suspect]
     Indication: PAIN MANAGEMENT
     Route: 065
  7. MORPHINE [Suspect]
     Route: 065

REACTIONS (6)
  - APHAGIA [None]
  - DELIRIUM [None]
  - DEPRESSED LEVEL OF CONSCIOUSNESS [None]
  - DRUG INEFFECTIVE [None]
  - OFF LABEL USE [None]
  - SOMNOLENCE [None]
